FAERS Safety Report 6622014-3 (Version None)
Quarter: 2010Q1

REPORT INFORMATION
  Report Type: 
  Country: None (occurrence: None)
  Receive Date: 20100223
  Receipt Date: 20091123
  Transmission Date: 20100710
  Serious: No
  Sender: FDA-Public Use
  Company Number: 002814

PATIENT
  Sex: Male
  Weight: 72.5 kg

DRUGS (3)
  1. CIMZIA [Suspect]
     Indication: COLITIS
     Dosage: SUBCUTANEOUS
     Route: 058
     Dates: start: 20090601
  2. CIMZIA [Suspect]
     Indication: CROHN'S DISEASE
     Dosage: SUBCUTANEOUS
     Route: 058
     Dates: start: 20090601
  3. ASACOL [Concomitant]

REACTIONS (3)
  - CROHN'S DISEASE [None]
  - DRUG INEFFECTIVE [None]
  - INCORRECT PRODUCT STORAGE [None]
